FAERS Safety Report 11131485 (Version 1)
Quarter: 2015Q2

REPORT INFORMATION
  Report Type: Spontaneous
  Country: US (occurrence: US)
  Receive Date: 20150522
  Receipt Date: 20150522
  Transmission Date: 20150821
  Serious: No
  Sender: FDA-Public Use
  Company Number: US-MYLANLABS-2014M1008838

PATIENT
  Age: 41 Year
  Sex: Female

DRUGS (3)
  1. CLOMIPRAMINE HYDROCHLORIDE CAPSULES, USP [Suspect]
     Active Substance: CLOMIPRAMINE HYDROCHLORIDE
     Indication: DEPRESSION
     Dosage: 50 MG, QD
     Route: 048
     Dates: start: 20140826, end: 20141021
  2. CLOMIPRAMINE HYDROCHLORIDE CAPSULES, USP [Suspect]
     Active Substance: CLOMIPRAMINE HYDROCHLORIDE
     Indication: ANXIETY
  3. CLOMIPRAMINE HYDROCHLORIDE CAPSULES, USP [Suspect]
     Active Substance: CLOMIPRAMINE HYDROCHLORIDE
     Indication: OBSESSIVE-COMPULSIVE DISORDER

REACTIONS (4)
  - Depression [Not Recovered/Not Resolved]
  - Drug ineffective [Not Recovered/Not Resolved]
  - Anxiety [Not Recovered/Not Resolved]
  - Drug level decreased [Not Recovered/Not Resolved]

NARRATIVE: CASE EVENT DATE: 20141002
